FAERS Safety Report 24372881 (Version 1)
Quarter: 2024Q3

REPORT INFORMATION
  Report Type: Spontaneous
  Country: DK (occurrence: DK)
  Receive Date: 20240927
  Receipt Date: 20240927
  Transmission Date: 20241016
  Serious: Yes (Other)
  Sender: TEVA
  Company Number: None

PATIENT
  Age: 73 Year
  Sex: Female
  Weight: 57 kg

DRUGS (3)
  1. ATORVASTATIN [Suspect]
     Active Substance: ATORVASTATIN
     Indication: Transient ischaemic attack
     Dosage: DOSAGE: UNKNOWN: ATORVASTATIN ^TEVA^:
     Route: 065
     Dates: start: 20240606, end: 20240629
  2. CLOPIDOGREL [Concomitant]
     Active Substance: CLOPIDOGREL BISULFATE
     Indication: Thrombosis prophylaxis
     Route: 065
     Dates: start: 20240606
  3. COZAAR [Concomitant]
     Active Substance: LOSARTAN POTASSIUM
     Indication: Hypertension
     Route: 065
     Dates: start: 20200527

REACTIONS (9)
  - Mental impairment [Recovered/Resolved]
  - Jaundice [Recovered/Resolved]
  - Hepatic function abnormal [Recovered/Resolved]
  - Hepatic enzyme increased [Recovered/Resolved]
  - Chills [Recovered/Resolved]
  - Faeces discoloured [Recovered/Resolved]
  - Chromaturia [Recovered/Resolved]
  - Fatigue [Recovered/Resolved]
  - Pyrexia [Recovered/Resolved]

NARRATIVE: CASE EVENT DATE: 20240626
